FAERS Safety Report 5151294-9 (Version None)
Quarter: 2006Q4

REPORT INFORMATION
  Report Type: 
  Country: None (occurrence: None)
  Receive Date: 20061114
  Receipt Date: 20061114
  Transmission Date: 20070319
  Serious: Yes (Other)
  Sender: FDA-Public Use
  Company Number: None

PATIENT
  Age: 63 Year
  Sex: Female
  Weight: 65.7716 kg

DRUGS (2)
  1. EQUATE PAIN RELIEVER    500 MG     PERRIGO, ALLEGAN, MI [Suspect]
     Indication: BODY TEMPERATURE INCREASED
     Dosage: 2 TABLETS   TWICE A DAY  PO
     Route: 048
     Dates: start: 20061029, end: 20061101
  2. EQUATE PAIN RELIEVER    500 MG     PERRIGO, ALLEGAN, MI [Suspect]
     Indication: HEADACHE
     Dosage: 2 TABLETS   TWICE A DAY  PO
     Route: 048
     Dates: start: 20061029, end: 20061101

REACTIONS (5)
  - ABDOMINAL PAIN UPPER [None]
  - DIARRHOEA [None]
  - DISCOMFORT [None]
  - HEADACHE [None]
  - PHARMACEUTICAL PRODUCT COMPLAINT [None]
